FAERS Safety Report 6099957-5 (Version None)
Quarter: 2009Q1

REPORT INFORMATION
  Report Type: 
  Country: None (occurrence: None)
  Receive Date: 20090303
  Receipt Date: 20090216
  Transmission Date: 20090719
  Serious: Yes (Hospitalization, Other)
  Sender: FDA-Public Use
  Company Number: PHHY2009FR05742

PATIENT
  Age: 78 Year
  Sex: Female

DRUGS (5)
  1. COTAREG [Suspect]
     Dosage: 80/12.5 MG DAILY
     Route: 048
     Dates: start: 20070101, end: 20081230
  2. MIOREL [Suspect]
     Dosage: 2 DF, BID
     Route: 048
     Dates: end: 20081230
  3. PAROXETINE HCL [Suspect]
     Dosage: 20 MG DAILY
     Route: 048
     Dates: start: 20070101, end: 20081230
  4. ESOMEPRAZOLE [Suspect]
     Dosage: 1 DF DAILY
     Route: 048
     Dates: end: 20081230
  5. ACETAMINOPHEN WITH PROPOXYPHENE HCL TAB [Suspect]
     Dosage: 2 DF, TID
     Dates: end: 20081230

REACTIONS (4)
  - BLOOD CORTISOL ABNORMAL [None]
  - DIZZINESS [None]
  - HYPONATRAEMIA [None]
  - TREATMENT NONCOMPLIANCE [None]
